FAERS Safety Report 5809654-6 (Version None)
Quarter: 2008Q3

REPORT INFORMATION
  Report Type: 
  Country: None (occurrence: None)
  Receive Date: 20080715
  Receipt Date: 20080704
  Transmission Date: 20090109
  Serious: Yes (Other)
  Sender: FDA-Public Use
  Company Number: GB-ELI_LILLY_AND_COMPANY-GB200807001802

PATIENT
  Age: 18 Year
  Sex: Male
  Weight: 101 kg

DRUGS (7)
  1. ZYPREXA [Suspect]
     Indication: ABNORMAL BEHAVIOUR
     Route: 048
  2. ZYPREXA [Suspect]
     Dosage: 12.5 MG, DAILY (1/D)
     Route: 048
     Dates: end: 20080514
  3. ZYPREXA [Suspect]
     Dosage: 5 MG, 2/D
     Route: 048
     Dates: start: 20080514, end: 20080602
  4. ZYPREXA [Suspect]
     Dosage: 7.5 MG, DAILY (1/D)
     Route: 048
     Dates: start: 20080606
  5. DIAZEPAM [Concomitant]
     Indication: ANXIETY
     Dosage: 5 MG, DAILY (1/D)
     Route: 048
     Dates: start: 20080510, end: 20080521
  6. LYMECYCLINE [Concomitant]
     Indication: ACNE
     Dosage: 40 MG, DAILY (1/D)
     Route: 048
     Dates: start: 20080509, end: 20080521
  7. OMEPRAZOLE [Concomitant]
     Indication: DYSPEPSIA
     Dosage: 20 MG, DAILY (1/D)
     Route: 048
     Dates: end: 20080521

REACTIONS (2)
  - DYSPHAGIA [None]
  - FEEDING DISORDER [None]
